FAERS Safety Report 6247917-3 (Version None)
Quarter: 2009Q2

REPORT INFORMATION
  Report Type: 
  Country: None (occurrence: None)
  Receive Date: 20090626
  Receipt Date: 20090615
  Transmission Date: 20091009
  Serious: Yes (Other)
  Sender: FDA-Public Use
  Company Number: PHHY2009GB24329

PATIENT
  Age: 67 Year
  Sex: Male
  Weight: 63.5 kg

DRUGS (4)
  1. VOLTAREN [Suspect]
     Indication: BACK PAIN
     Dosage: UNK
     Route: 048
     Dates: start: 20080708, end: 20080709
  2. SIMVASTATIN [Interacting]
     Indication: HYPERCHOLESTEROLAEMIA
     Dosage: UNK
     Route: 048
     Dates: start: 20070514
  3. ASPIRIN [Concomitant]
     Indication: MYOCARDIAL ISCHAEMIA
     Dosage: UNK
     Route: 048
     Dates: start: 20070514
  4. PHOLCODINE [Concomitant]
     Indication: COUGH
     Dosage: 5 MG, UNK
     Route: 048
     Dates: start: 20050703, end: 20080710

REACTIONS (4)
  - DRUG INTERACTION [None]
  - FALL [None]
  - HEAD INJURY [None]
  - LOSS OF CONSCIOUSNESS [None]
